FAERS Safety Report 4358896-8 (Version None)
Quarter: 2004Q2

REPORT INFORMATION
  Report Type: 
  Country: None (occurrence: None)
  Receive Date: 20040512
  Receipt Date: 20040427
  Transmission Date: 20050107
  Serious: Yes (Death)
  Sender: FDA-Public Use
  Company Number: JP_040403075

PATIENT
  Age: 65 Year
  Sex: Male
  Weight: 69 kg

DRUGS (4)
  1. GEMZAR [Suspect]
     Indication: PANCREATIC CARCINOMA
     Dosage: 1000 MG OTHER
     Dates: start: 20030708, end: 20031110
  2. VOLTAREN [Concomitant]
  3. FAMOTIDINE [Concomitant]
  4. MS CONTIN [Concomitant]

REACTIONS (1)
  - DEATH [None]
